FAERS Safety Report 7291107-2 (Version None)
Quarter: 2011Q1

REPORT INFORMATION
  Report Type: 
  Country: None (occurrence: None)
  Receive Date: 20110214
  Receipt Date: 20110119
  Transmission Date: 20110831
  Serious: Yes (Hospitalization)
  Sender: FDA-Public Use
  Company Number: PHHY2011CH04138

PATIENT
  Age: 64 Year
  Sex: Male

DRUGS (2)
  1. GLEEVEC [Suspect]
     Indication: MALIGNANT MAST CELL NEOPLASM
     Dosage: 400 MG DAILY
     Route: 048
     Dates: end: 20100921
  2. METHOTREXAT [Concomitant]
     Indication: ARTHRITIS
     Dosage: UNK
     Route: 048
     Dates: start: 20100301, end: 20100922

REACTIONS (6)
  - ARTHROPOD BITE [None]
  - PYREXIA [None]
  - ORAL CANDIDIASIS [None]
  - AGRANULOCYTOSIS [None]
  - BONE MARROW DISORDER [None]
  - ASPIRATION BONE MARROW ABNORMAL [None]
